FAERS Safety Report 5521036-3 (Version None)
Quarter: 2007Q4

REPORT INFORMATION
  Report Type: 
  Country: None (occurrence: None)
  Receive Date: 20071119
  Receipt Date: 20071112
  Transmission Date: 20080405
  Serious: Yes (Other)
  Sender: FDA-Public Use
  Company Number: US-JNJFOC-20071104856

PATIENT
  Sex: Female

DRUGS (1)
  1. TYLENOL SINUS SEVERE CONGESTION COOL BURST [Suspect]
     Indication: DRUG USE FOR UNKNOWN INDICATION

REACTIONS (1)
  - SKIN EXFOLIATION [None]
